FAERS Safety Report 5489901-3 (Version None)
Quarter: 2007Q4

REPORT INFORMATION
  Report Type: 
  Country: None (occurrence: None)
  Receive Date: 20071018
  Receipt Date: 20071008
  Transmission Date: 20080405
  Serious: Yes (Other)
  Sender: FDA-Public Use
  Company Number: PFIZER INC-2007084384

PATIENT
  Age: 54 Year
  Sex: Female

DRUGS (19)
  1. CELEBREX [Suspect]
     Route: 048
  2. DAYPRO CAPLET [Suspect]
  3. VITAMIN B6 [Suspect]
     Dosage: DAILY DOSE:250MG
  4. ALL OTHER THERAPEUTIC PRODUCTS [Suspect]
  5. ALL OTHER THERAPEUTIC PRODUCTS [Suspect]
     Dosage: DAILY DOSE:210MG
  6. GARLIC [Suspect]
     Dosage: TEXT:2600 UG
  7. ALL OTHER THERAPEUTIC PRODUCTS [Suspect]
     Dosage: DAILY DOSE:250MG
  8. EVENING PRIMROSE OIL [Suspect]
  9. VITATHION [Suspect]
  10. TOCOPHEROL CONCENTRATE CAP [Suspect]
  11. VITAMIN D [Suspect]
     Route: 048
  12. FLEXERIL [Suspect]
     Route: 048
  13. CALCIUM [Suspect]
     Route: 048
  14. WITCH HAZEL [Suspect]
  15. PROMETRIUM [Suspect]
  16. OESCLIM [Suspect]
  17. PYCNOGENOL [Suspect]
  18. DONG QUAI [Suspect]
  19. MAGNESIUM SULFATE [Suspect]

REACTIONS (1)
  - CREUTZFELDT-JAKOB DISEASE [None]
